FAERS Safety Report 8274085-9 (Version None)
Quarter: 2012Q2

REPORT INFORMATION
  Report Type: 
  Country: None (occurrence: None)
  Receive Date: 20120411
  Receipt Date: 20120329
  Transmission Date: 20120825
  Serious: Yes (Hospitalization)
  Sender: FDA-Public Use
  Company Number: NL-ELI_LILLY_AND_COMPANY-NL201204000911

PATIENT
  Sex: Male
  Weight: 80 kg

DRUGS (17)
  1. CIXUTUMUMAB [Suspect]
     Indication: NON-SMALL CELL LUNG CANCER
     Dosage: 20 MG/KG, OTHER
     Route: 042
     Dates: start: 20120130
  2. OMEPRAZOLE [Concomitant]
     Dosage: UNK
     Dates: start: 20110124
  3. TRAMADOL HYDROCHLORIDE [Concomitant]
     Indication: NON-CARDIAC CHEST PAIN
     Dosage: UNK
     Dates: start: 20120206
  4. NIFEDIPINE [Concomitant]
     Indication: HYPERTENSION
     Dosage: UNK
     Dates: start: 20120224
  5. CISPLATIN [Suspect]
     Indication: NON-SMALL CELL LUNG CANCER
     Dosage: 75 MG/M2, OTHER
     Route: 042
     Dates: start: 20120130
  6. ISORDIL [Concomitant]
     Dosage: UNK
     Dates: start: 20010112
  7. PEMETREXED [Suspect]
     Indication: NON-SMALL CELL LUNG CANCER
     Dosage: 500 MG/M2, OTHER
     Route: 042
     Dates: start: 20120130
  8. VITAMIN B-12 [Concomitant]
     Dosage: UNK
     Dates: start: 20120119
  9. DEXAMETHASONE [Concomitant]
     Dosage: UNK
     Dates: start: 20120129
  10. ENALAPRIL MALEATE [Concomitant]
     Indication: HYPERTENSION
     Dosage: UNK
     Dates: start: 20111212
  11. METOCLOPRAMIDE [Concomitant]
     Indication: NAUSEA
     Dosage: UNK
     Dates: start: 20120131, end: 20120227
  12. ZOFRAN [Concomitant]
     Indication: NAUSEA
     Dosage: UNK
     Dates: start: 20120227
  13. FOLIC ACID [Concomitant]
     Dosage: UNK
     Dates: start: 20120119
  14. FINASTERIDE [Concomitant]
     Indication: PROSTATIC OBSTRUCTION
     Dosage: UNK
     Dates: start: 20010916
  15. PRAVASTATIN [Concomitant]
     Dosage: UNK
     Dates: start: 20020114
  16. ARANESP [Concomitant]
     Indication: ANAEMIA
     Dosage: UNK
     Dates: start: 20120217
  17. FRAXODI [Concomitant]
     Dosage: UNK
     Dates: start: 20120223

REACTIONS (2)
  - PANCYTOPENIA [None]
  - RENAL FAILURE [None]
